FAERS Safety Report 8532847-4 (Version None)
Quarter: 2012Q3

REPORT INFORMATION
  Report Type: 
  Country: None (occurrence: None)
  Receive Date: 20120711
  Receipt Date: 20120626
  Transmission Date: 20120928
  Serious: Yes (Hospitalization)
  Sender: FDA-Public Use
  Company Number: JPI-P-022349

PATIENT
  Age: 71 Year
  Sex: Female

DRUGS (3)
  1. SULFAMETHOXAZOLE [Concomitant]
  2. XYREM [Suspect]
     Indication: CATAPLEXY
     Dosage: 4.5 GM (2.25 GM,2 IN 1 D),ORAL
     Route: 048
     Dates: start: 20021031
  3. ACETAMINOPHEN AND HYDROCODONE [Concomitant]

REACTIONS (8)
  - CATAPLEXY [None]
  - RIB FRACTURE [None]
  - BALANCE DISORDER [None]
  - TOOTH INFECTION [None]
  - BREAST CANCER METASTATIC [None]
  - PAIN [None]
  - URINARY TRACT INFECTION [None]
  - GINGIVAL SWELLING [None]
